FAERS Safety Report 22519444 (Version 2)
Quarter: 2023Q2

REPORT INFORMATION
  Report Type: Other
  Country: FR (occurrence: FR)
  Receive Date: 20230605
  Receipt Date: 20230607
  Transmission Date: 20230721
  Serious: Yes (Hospitalization, Other)
  Sender: FDA-Public Use
  Company Number: None

PATIENT
  Age: 62 Year
  Sex: Male
  Weight: 56 kg

DRUGS (3)
  1. TACROLIMUS [Interacting]
     Active Substance: TACROLIMUS
     Indication: Prophylaxis against transplant rejection
     Route: 048
     Dates: end: 20230507
  2. PAXLOVID [Interacting]
     Active Substance: NIRMATRELVIR\RITONAVIR
     Indication: COVID-19
     Dosage: 3 DF (2TABS+1TAB), EVERY OTHER DAY
     Route: 048
     Dates: start: 20230505, end: 20230506
  3. LERCANIDIPINE [Concomitant]
     Active Substance: LERCANIDIPINE
     Indication: Product used for unknown indication
     Dosage: UNK UNK, UNKNOWN FREQ.
     Route: 065

REACTIONS (5)
  - Hypertension [Recovered/Resolved]
  - Acute kidney injury [Recovered/Resolved]
  - Immunosuppressant drug level increased [Recovered/Resolved]
  - Gastrointestinal disorder [Recovered/Resolved]
  - Drug interaction [Recovered/Resolved]

NARRATIVE: CASE EVENT DATE: 20230505
